FAERS Safety Report 4654453-4 (Version None)
Quarter: 2005Q2

REPORT INFORMATION
  Report Type: 
  Country: None (occurrence: None)
  Receive Date: 20050404
  Receipt Date: 20050106
  Transmission Date: 20051028
  Serious: No
  Sender: FDA-Public Use
  Company Number: USA050187644

PATIENT
  Age: 45 Year
  Sex: Female

DRUGS (1)
  1. CYMBALTA [Suspect]
     Indication: ANXIETY
     Dosage: 60 MG DAY
     Dates: start: 20050102, end: 20050103

REACTIONS (6)
  - BACK PAIN [None]
  - FEELING ABNORMAL [None]
  - INSOMNIA [None]
  - NECK PAIN [None]
  - NIGHTMARE [None]
  - SOMNOLENCE [None]
